FAERS Safety Report 24000184 (Version 1)
Quarter: 2024Q2

REPORT INFORMATION
  Report Type: Spontaneous
  Country: US (occurrence: None)
  Receive Date: 20240620
  Receipt Date: 20240620
  Transmission Date: 20240716
  Serious: Yes (Death, Hospitalization)
  Sender: FDA-Public Use
  Company Number: None

PATIENT
  Age: 73 Year
  Sex: Male
  Weight: 61.2 kg

DRUGS (1)
  1. ROMOSOZUMAB [Suspect]
     Active Substance: ROMOSOZUMAB
     Indication: Arthritis
     Dosage: OTHER QUANTITY : 1 INJECTION(S);?

REACTIONS (4)
  - Acute myocardial infarction [None]
  - Cardiac failure [None]
  - Renal failure [None]
  - Vertebroplasty [None]

NARRATIVE: CASE EVENT DATE: 20220610
